FAERS Safety Report 19261079 (Version 3)
Quarter: 2021Q2

REPORT INFORMATION
  Report Type: Spontaneous
  Country: US (occurrence: US)
  Receive Date: 20210515
  Receipt Date: 20210618
  Transmission Date: 20210717
  Serious: No
  Sender: FDA-Public Use
  Company Number: US-SA-2021SA158409

PATIENT
  Sex: Female

DRUGS (21)
  1. AZELASTINE. [Concomitant]
     Active Substance: AZELASTINE HYDROCHLORIDE
  2. LEVOTHYROXIN [Concomitant]
     Active Substance: LEVOTHYROXINE
     Indication: HYPOTHYROIDISM
  3. CELECOXIB. [Concomitant]
     Active Substance: CELECOXIB
  4. DOXYCYCLIN [DOXYCYCLINE] [Concomitant]
     Active Substance: DOXYCYCLINE
  5. VIT D [VITAMIN D NOS] [Concomitant]
  6. DULERA [Concomitant]
     Active Substance: FORMOTEROL FUMARATE DIHYDRATE\MOMETASONE FUROATE
  7. LISINOPRIL. [Concomitant]
     Active Substance: LISINOPRIL
  8. MONTELUKAST [Concomitant]
     Active Substance: MONTELUKAST SODIUM
  9. BUDESONIDE. [Concomitant]
     Active Substance: BUDESONIDE
  10. DILT?XR [Concomitant]
     Active Substance: DILTIAZEM
  11. VITAMIN D NOS [Concomitant]
     Active Substance: VITAMIN D NOS
  12. CEFDINIR. [Concomitant]
     Active Substance: CEFDINIR
  13. METFORMIN [Concomitant]
     Active Substance: METFORMIN HYDROCHLORIDE
  14. NEXIUM I.V. [Concomitant]
     Active Substance: ESOMEPRAZOLE SODIUM
  15. PANTOPRAZOLE [Concomitant]
     Active Substance: PANTOPRAZOLE
  16. DUPIXENT [Suspect]
     Active Substance: DUPILUMAB
     Indication: ASTHMA
     Dosage: 200 MG, QOW
     Route: 058
     Dates: start: 20200128
  17. AZELASTINE. [Concomitant]
     Active Substance: AZELASTINE HYDROCHLORIDE
  18. DILTIAZEM. [Concomitant]
     Active Substance: DILTIAZEM
  19. OMEPRAZOLE. [Concomitant]
     Active Substance: OMEPRAZOLE
  20. PREDNISONE. [Concomitant]
     Active Substance: PREDNISONE
  21. XIIDRA [Concomitant]
     Active Substance: LIFITEGRAST

REACTIONS (4)
  - Asthma [Not Recovered/Not Resolved]
  - Sinusitis [Unknown]
  - Injection site rash [Unknown]
  - Illness [Not Recovered/Not Resolved]
